FAERS Safety Report 13937358 (Version 1)
Quarter: 2017Q3

REPORT INFORMATION
  Report Type: Spontaneous
  Country: US (occurrence: US)
  Receive Date: 20170905
  Receipt Date: 20170905
  Transmission Date: 20171127
  Serious: No
  Sender: FDA-Public Use
  Company Number: US-PFIZER INC-2017376821

PATIENT
  Age: 64 Year
  Sex: Female

DRUGS (3)
  1. MEDROL [Suspect]
     Active Substance: METHYLPREDNISOLONE
     Dosage: UNK
  2. METHOTREXATE SODIUM. [Suspect]
     Active Substance: METHOTREXATE SODIUM
     Dosage: UNK
  3. CENTRUM [Suspect]
     Active Substance: VITAMINS
     Dosage: UNK

REACTIONS (4)
  - Nodule [Unknown]
  - Pain in extremity [Unknown]
  - Arthralgia [Unknown]
  - Swelling [Unknown]
